FAERS Safety Report 8216439-2 (Version None)
Quarter: 2012Q1

REPORT INFORMATION
  Report Type: 
  Country: None (occurrence: None)
  Receive Date: 20120316
  Receipt Date: 20120315
  Transmission Date: 20120608
  Serious: Yes (Other)
  Sender: FDA-Public Use
  Company Number: PHFR2012IE001121

PATIENT
  Sex: Female

DRUGS (4)
  1. CLOZARIL [Suspect]
     Indication: SCHIZOPHRENIA
     Dosage: 25 MG, BID
     Route: 048
     Dates: start: 20120209
  2. MOVIPREP [Concomitant]
     Indication: CONSTIPATION
     Dosage: UNK UKN, UNK
     Route: 048
     Dates: start: 20120207
  3. JASMINE [Concomitant]
     Indication: ORAL CONTRACEPTION
     Dosage: UNK UKN, UNK
     Dates: start: 20120212
  4. CITALOPRAM HYDROBROMIDE [Concomitant]
     Indication: ANTIDEPRESSANT THERAPY
     Dosage: 30 MG, UNK
     Route: 048
     Dates: start: 20120207

REACTIONS (2)
  - URINARY TRACT INFECTION [None]
  - BODY TEMPERATURE INCREASED [None]
